FAERS Safety Report 7570771-4 (Version None)
Quarter: 2011Q2

REPORT INFORMATION
  Report Type: 
  Country: None (occurrence: None)
  Receive Date: 20110624
  Receipt Date: 20110613
  Transmission Date: 20111010
  Serious: Yes (Other)
  Sender: FDA-Public Use
  Company Number: US-ELI_LILLY_AND_COMPANY-US201005000613

PATIENT
  Sex: Female
  Weight: 59.864 kg

DRUGS (13)
  1. NOVOLOG [Concomitant]
     Indication: DIABETES MELLITUS
  2. VYTORIN [Concomitant]
     Dosage: UNK, QD
  3. ATENOLOL [Concomitant]
     Dosage: 25 MG, QD
  4. TRICOR [Concomitant]
     Dosage: 48 MG, QD
  5. BYETTA [Suspect]
     Dosage: 10 UG, BID
     Dates: start: 20050701
  6. TYLENOL (CAPLET) [Concomitant]
     Indication: PAIN
  7. HYDROCHLOROTHIAZIDE W/VALSARTAN [Concomitant]
     Dosage: 2 DF, QD
  8. BYETTA [Suspect]
     Dosage: 5 UG, BID
     Dates: end: 20100201
  9. FERROUS SULFATE TAB [Concomitant]
     Dosage: 325 MG, QD
  10. VIOKASE 16 [Concomitant]
     Dosage: 9 UNK, UNK
     Dates: start: 20060101
  11. LANTUS [Concomitant]
     Dosage: 25 U, EACH EVENING
  12. NEXIUM [Concomitant]
  13. LIPITOR [Concomitant]
     Indication: BLOOD CHOLESTEROL
     Dosage: 40 MG, QD

REACTIONS (5)
  - OFF LABEL USE [None]
  - PANCREATITIS [None]
  - WEIGHT DECREASED [None]
  - RENAL FAILURE CHRONIC [None]
  - ANAEMIA [None]
